FAERS Safety Report 9127014 (Version 1)
Quarter: 2013Q1

REPORT INFORMATION
  Report Type: Spontaneous
  Country: BR (occurrence: BR)
  Receive Date: 20130122
  Receipt Date: 20130122
  Transmission Date: 20140127
  Serious: Yes (Other)
  Sender: FDA-Public Use
  Company Number: PHHY2013BR004889

PATIENT
  Age: 7 Year
  Sex: Male

DRUGS (1)
  1. RITALIN LA [Suspect]
     Dosage: 30 MG, UNK
     Route: 048
     Dates: start: 201209

REACTIONS (12)
  - Urinary tract infection [Not Recovered/Not Resolved]
  - Urinary tract pain [Not Recovered/Not Resolved]
  - Blood urine present [Recovered/Resolved]
  - Pyrexia [Recovered/Resolved]
  - Rash generalised [Unknown]
  - Erythema [Unknown]
  - Ear swelling [Recovering/Resolving]
  - Palpitations [Recovered/Resolved]
  - Pallor [Recovered/Resolved]
  - Somnolence [Not Recovered/Not Resolved]
  - Application site pain [Recovering/Resolving]
  - Agitation [Recovered/Resolved]
